FAERS Safety Report 7632122-6 (Version None)
Quarter: 2011Q3

REPORT INFORMATION
  Report Type: 
  Country: None (occurrence: None)
  Receive Date: 20110725
  Receipt Date: 20110725
  Transmission Date: 20111222
  Serious: Yes (Other)
  Sender: FDA-Public Use
  Company Number: None

PATIENT
  Sex: Female
  Weight: 76.203 kg

DRUGS (1)
  1. SIMVASTATIN [Suspect]
     Indication: BLOOD CHOLESTEROL INCREASED
     Dosage: 10MG
     Route: 048

REACTIONS (14)
  - FALL [None]
  - MUSCULAR WEAKNESS [None]
  - BALANCE DISORDER [None]
  - RHABDOMYOLYSIS [None]
  - BLOOD CREATINE PHOSPHOKINASE INCREASED [None]
  - HYPERSOMNIA [None]
  - MUSCLE ATROPHY [None]
  - LACTOSE INTOLERANCE [None]
  - OSTEOARTHRITIS [None]
  - ASTHMA [None]
  - FATIGUE [None]
  - RENAL IMPAIRMENT [None]
  - PERIPHERAL SENSORIMOTOR NEUROPATHY [None]
  - DRUG INTERACTION [None]
